FAERS Safety Report 22954564 (Version 2)
Quarter: 2023Q4

REPORT INFORMATION
  Report Type: Report from Study
  Country: CO (occurrence: CO)
  Receive Date: 20230918
  Receipt Date: 20231031
  Transmission Date: 20240109
  Serious: Yes (Hospitalization, Other)
  Sender: FDA-Public Use
  Company Number: CO-002147023-NVSC2023CO197617

PATIENT
  Sex: Male

DRUGS (1)
  1. TASIGNA [Suspect]
     Active Substance: NILOTINIB
     Indication: Chronic myeloid leukaemia
     Dosage: 800 MG, QD
     Route: 048
     Dates: start: 2012

REACTIONS (8)
  - Chronic myeloid leukaemia [Unknown]
  - Malignant neoplasm progression [Unknown]
  - Ill-defined disorder [Unknown]
  - Decreased immune responsiveness [Unknown]
  - Feeling drunk [Unknown]
  - Headache [Unknown]
  - Musculoskeletal pain [Unknown]
  - Off label use [Unknown]

NARRATIVE: CASE EVENT DATE: 20120101
